FAERS Safety Report 18687124 (Version 1)
Quarter: 2020Q4

REPORT INFORMATION
  Report Type: Spontaneous
  Country: DE (occurrence: DE)
  Receive Date: 20201231
  Receipt Date: 20201231
  Transmission Date: 20210114
  Serious: Yes (Other)
  Sender: FDA-Public Use
  Company Number: DE-BRISTOL-MYERS SQUIBB COMPANY-BMS-2020-111781

PATIENT
  Age: 22 Year
  Sex: Female

DRUGS (3)
  1. NIVOLUMAB [Suspect]
     Active Substance: NIVOLUMAB
     Dosage: FOLLOWED BY THREE CYCLES (1 MG/KG)
     Route: 065
  2. NIVOLUMAB [Suspect]
     Active Substance: NIVOLUMAB
     Indication: HEPATOCELLULAR CARCINOMA
     Dosage: 240 MG, ONE CYCLE
     Route: 065
  3. IPILIMUMAB [Suspect]
     Active Substance: IPILIMUMAB
     Indication: HEPATOCELLULAR CARCINOMA
     Dosage: THREE CYCLES, 3 MILLIGRAM/KILOGRAM
     Route: 065

REACTIONS (4)
  - Intentional product use issue [Unknown]
  - Immune-mediated hyperthyroidism [Unknown]
  - Immune-mediated hepatitis [Unknown]
  - Hepatic failure [Unknown]
